FAERS Safety Report 14612249 (Version 3)
Quarter: 2020Q3

REPORT INFORMATION
  Report Type: Spontaneous
  Country: TH (occurrence: TH)
  Receive Date: 20180308
  Receipt Date: 20180327
  Transmission Date: 20201105
  Serious: Yes (Other)
  Sender: FDA-Public Use
  Company Number: PHHY2018TH036144

PATIENT
  Age: 43 Year
  Sex: Female

DRUGS (3)
  1. ZYKADIA [Suspect]
     Active Substance: CERITINIB
     Indication: PRODUCT USED FOR UNKNOWN INDICATION
     Dosage: 450 MG, QD
     Route: 065
  2. ALECTINIB. [Concomitant]
     Active Substance: ALECTINIB
     Dosage: 600 MG, BID
     Route: 048
  3. ALECTINIB. [Concomitant]
     Active Substance: ALECTINIB
     Indication: PRODUCT USED FOR UNKNOWN INDICATION
     Dosage: 300 MG, BID
     Route: 048

REACTIONS (3)
  - Malignant neoplasm progression [Unknown]
  - Neoplasm [Unknown]
  - Metastases to central nervous system [Unknown]
